FAERS Safety Report 25036732 (Version 1)
Quarter: 2025Q1

REPORT INFORMATION
  Report Type: Spontaneous
  Country: US (occurrence: US)
  Receive Date: 20250304
  Receipt Date: 20250304
  Transmission Date: 20250409
  Serious: Yes (Other)
  Sender: SEPTODONT
  Company Number: US-SEPTODONT-2025019448

PATIENT

DRUGS (1)
  1. CARBOCAINE [Suspect]
     Active Substance: MEPIVACAINE HYDROCHLORIDE
     Indication: Dental local anaesthesia
     Route: 065

REACTIONS (4)
  - Bell^s palsy [Unknown]
  - Facial paralysis [Unknown]
  - Erythema [Unknown]
  - Mydriasis [Recovered/Resolved]
